FAERS Safety Report 4454512-5 (Version None)
Quarter: 2004Q3

REPORT INFORMATION
  Report Type: 
  Country: None (occurrence: None)
  Receive Date: 20040921
  Receipt Date: 20040315
  Transmission Date: 20050211
  Serious: Yes (Death, Other)
  Sender: FDA-Public Use
  Company Number: PHEH2004US03031

PATIENT
  Age: 76 Year
  Sex: Male

DRUGS (10)
  1. ZOMETA [Suspect]
     Dosage: 4 MG, QMO
     Route: 042
     Dates: start: 20020319
  2. AREDIA [Suspect]
     Dosage: UNK, UNK
     Dates: start: 19990813
  3. CYTOXAN [Concomitant]
     Dosage: 25 MG, BID
     Dates: start: 20020101
  4. FLUOROURACIL [Concomitant]
     Dates: start: 20020901, end: 20021001
  5. HYDROCORT [Concomitant]
     Dosage: 30 MG, UNK
     Dates: start: 20021030, end: 20030301
  6. PEGINTERFERON ALFA-2A [Concomitant]
  7. METHOTREXATE [Concomitant]
     Dosage: 2.5 MG, BID
     Dates: start: 20030401, end: 20030507
  8. HERCEPTIN [Concomitant]
     Dosage: UNK, ONCE/SINGLE
     Dates: start: 20020201
  9. LOGYNON [Concomitant]
     Dates: start: 20030501
  10. DECADRON [Concomitant]
     Dosage: 20 MG, UNK
     Dates: start: 19990801, end: 20031201

REACTIONS (2)
  - METASTASES TO LIVER [None]
  - OSTEOMYELITIS [None]
